FAERS Safety Report 10264158 (Version 1)
Quarter: 2014Q2

REPORT INFORMATION
  Report Type: Report from Study
  Country: US (occurrence: US)
  Receive Date: 20140627
  Receipt Date: 20140627
  Transmission Date: 20141212
  Serious: Yes (Other)
  Sender: FDA-Public Use
  Company Number: US-ROCHE-1369483

PATIENT
  Sex: Female
  Weight: 107 kg

DRUGS (15)
  1. XOLAIR [Suspect]
     Indication: PRODUCT USED FOR UNKNOWN INDICATION
     Route: 058
  2. ALBUTEROL [Concomitant]
     Dosage: NEB. SOL 0.083%
     Route: 065
  3. EPIPEN 2-PAK [Concomitant]
     Dosage: (0.3MG) UNS 1 INJECTION
     Route: 065
  4. FLONASE [Concomitant]
     Route: 045
  5. GEODON (UNITED STATES) [Concomitant]
     Route: 048
  6. MUCINEX [Concomitant]
     Route: 065
  7. PRILOSEC [Concomitant]
     Route: 048
  8. PROVENTIL HFA [Concomitant]
     Dosage: 2 PUFFS
     Route: 065
  9. PULMICORT INHALER [Concomitant]
     Route: 065
  10. ROBITUSSIN MAXIMUM STRENGTH COUGH [Concomitant]
     Route: 065
  11. SINGULAIR [Concomitant]
     Route: 048
  12. XANAX [Concomitant]
     Route: 048
  13. ZYRTEC [Concomitant]
     Route: 048
  14. NASONEX [Concomitant]
     Route: 065
  15. SEPTRA DS [Concomitant]
     Dosage: FOR 10 DAYS
     Route: 065
     Dates: end: 20120223

REACTIONS (4)
  - Anaphylactic reaction [Unknown]
  - Bone pain [Unknown]
  - Seasonal allergy [Unknown]
  - Asthma [Unknown]
